FAERS Safety Report 20459904 (Version 1)
Quarter: 2022Q1

REPORT INFORMATION
  Report Type: Spontaneous
  Country: CN (occurrence: CN)
  Receive Date: 20220211
  Receipt Date: 20220211
  Transmission Date: 20220423
  Serious: Yes (Other)
  Sender: FDA-Public Use
  Company Number: CN-BoehringerIngelheim-2022-BI-152601

PATIENT
  Age: 72 Year
  Sex: Female
  Weight: 50 kg

DRUGS (1)
  1. ALTEPLASE [Suspect]
     Active Substance: ALTEPLASE
     Indication: Thrombosis prophylaxis
     Route: 042
     Dates: start: 20220120, end: 20220120

REACTIONS (1)
  - Vasogenic cerebral oedema [Recovered/Resolved]

NARRATIVE: CASE EVENT DATE: 20220120
